FAERS Safety Report 16847960 (Version 1)
Quarter: 2019Q3

REPORT INFORMATION
  Report Type: Spontaneous
  Country: CA (occurrence: CA)
  Receive Date: 20190924
  Receipt Date: 20190924
  Transmission Date: 20191005
  Serious: Yes (Other)
  Sender: FDA-Public Use
  Company Number: CA-AUROBINDO-AUR-APL-2019-062350

PATIENT
  Age: 80 Year
  Sex: Male

DRUGS (2)
  1. TADALAFIL. [Suspect]
     Active Substance: TADALAFIL
     Indication: BENIGN PROSTATIC HYPERPLASIA
     Dosage: UNK
     Route: 065
  2. TADALAFIL. [Suspect]
     Active Substance: TADALAFIL
     Indication: ERECTILE DYSFUNCTION
     Dosage: 5 MILLIGRAM, ONCE A DAY
     Route: 048

REACTIONS (5)
  - Pneumonia [Not Recovered/Not Resolved]
  - Pollakiuria [Not Recovered/Not Resolved]
  - Drug ineffective [Not Recovered/Not Resolved]
  - Cystitis [Not Recovered/Not Resolved]
  - Eructation [Not Recovered/Not Resolved]
